FAERS Safety Report 14044475 (Version 3)
Quarter: 2017Q4

REPORT INFORMATION
  Report Type: Spontaneous
  Country: IT (occurrence: IT)
  Receive Date: 20171004
  Receipt Date: 20171016
  Transmission Date: 20180321
  Serious: Yes (Hospitalization, Other)
  Sender: FDA-Public Use
  Company Number: IT-TEVA-811403ROM

PATIENT
  Age: 71 Year
  Sex: Male

DRUGS (3)
  1. METHOTREXATE. [Suspect]
     Active Substance: METHOTREXATE
     Indication: RHEUMATOID ARTHRITIS
     Route: 065
  2. ALFUZOSIN [Concomitant]
     Active Substance: ALFUZOSIN
     Dosage: 0.4 MG PER DAY
     Route: 065
  3. RAMIPRIL. [Concomitant]
     Active Substance: RAMIPRIL
     Dosage: 5 MG PER DAY
     Route: 065

REACTIONS (7)
  - Hypotension [Recovered/Resolved]
  - Syncope [Recovered/Resolved]
  - Fatigue [Recovered/Resolved]
  - Autonomic nervous system imbalance [Recovered/Resolved]
  - Orthostatic hypotension [Recovered/Resolved]
  - Urinary incontinence [Recovered/Resolved]
  - Dizziness [Recovered/Resolved]
